FAERS Safety Report 23019826 (Version 1)
Quarter: 2023Q4

REPORT INFORMATION
  Report Type: Spontaneous
  Country: DE (occurrence: DE)
  Receive Date: 20231003
  Receipt Date: 20231003
  Transmission Date: 20240110
  Serious: Yes (Other)
  Sender: FDA-Public Use
  Company Number: None

PATIENT
  Age: 81 Year
  Sex: Female

DRUGS (1)
  1. EYLEA [Suspect]
     Active Substance: AFLIBERCEPT
     Indication: Macular degeneration
     Dosage: SOLUTION FOR INJECTION, 40MG/ML
     Route: 031
     Dates: start: 20210112, end: 20220520

REACTIONS (8)
  - Poisoning [Recovering/Resolving]
  - Renal impairment [Recovering/Resolving]
  - Neuralgia [Recovering/Resolving]
  - Pain [Recovering/Resolving]
  - Arthralgia [Recovering/Resolving]
  - Gait disturbance [Recovering/Resolving]
  - Functional gastrointestinal disorder [Recovering/Resolving]
  - Asthenia [Recovering/Resolving]
